FAERS Safety Report 7772148-5 (Version None)
Quarter: 2011Q3

REPORT INFORMATION
  Report Type: 
  Country: None (occurrence: None)
  Receive Date: 20110922
  Receipt Date: 20110916
  Transmission Date: 20111222
  Serious: Yes (Death, Hospitalization, Other)
  Sender: FDA-Public Use
  Company Number: SE-ABBOTT-11P-150-0842261-00

PATIENT
  Sex: Male

DRUGS (8)
  1. WARFARIN SODIUM [Concomitant]
     Indication: PRODUCT USED FOR UNKNOWN INDICATION
  2. KOLKICIN [Suspect]
     Indication: GOUT
     Route: 048
     Dates: start: 20110427, end: 20110530
  3. CLARITHROMYCIN [Interacting]
     Indication: PRODUCT USED FOR UNKNOWN INDICATION
     Dosage: TAKEN DAILY
     Route: 048
     Dates: start: 20110519, end: 20110530
  4. LEVOFLOXACIN [Suspect]
     Indication: PRODUCT USED FOR UNKNOWN INDICATION
     Dosage: TAKEN DAILY
     Dates: start: 20110519, end: 20110530
  5. KOLKICIN [Suspect]
     Indication: PAIN IN EXTREMITY
  6. AMIKACIN [Suspect]
     Indication: PRODUCT USED FOR UNKNOWN INDICATION
     Dosage: INJECTION DAILY
     Dates: start: 20110501, end: 20110530
  7. LYRICA [Concomitant]
     Indication: PRODUCT USED FOR UNKNOWN INDICATION
  8. PREDNISOLONE [Concomitant]
     Indication: PRODUCT USED FOR UNKNOWN INDICATION

REACTIONS (19)
  - AGRANULOCYTOSIS [None]
  - MYCOBACTERIUM CHELONAE INFECTION [None]
  - CARDIAC ARREST [None]
  - DRUG INTERACTION [None]
  - PLATELET COUNT DECREASED [None]
  - DYSPNOEA [None]
  - SKIN ULCER [None]
  - BACK PAIN [None]
  - C-REACTIVE PROTEIN INCREASED [None]
  - TOXICITY TO VARIOUS AGENTS [None]
  - DIARRHOEA [None]
  - TACHYCARDIA [None]
  - PAIN IN EXTREMITY [None]
  - LEUKOCYTOCLASTIC VASCULITIS [None]
  - PANCYTOPENIA [None]
  - GOUT [None]
  - WHITE BLOOD CELL COUNT DECREASED [None]
  - HYPOTENSION [None]
  - BLOOD CREATININE INCREASED [None]
